FAERS Safety Report 5882127-0 (Version None)
Quarter: 2008Q3

REPORT INFORMATION
  Report Type: 
  Country: None (occurrence: None)
  Receive Date: 20080912
  Receipt Date: 20080722
  Transmission Date: 20090109
  Serious: No
  Sender: FDA-Public Use
  Company Number: US-ABBOTT-08P-163-0465633-00

PATIENT
  Sex: Female
  Weight: 82.174 kg

DRUGS (10)
  1. HUMIRA [Suspect]
     Indication: RHEUMATOID ARTHRITIS
     Route: 050
     Dates: start: 20080612
  2. BLOPRESS PLUS [Concomitant]
     Indication: HYPERTENSION
     Dosage: 16/12.5
     Route: 048
  3. HYDROCHLOROTHIAZIDE [Concomitant]
     Indication: HYPERTENSION
     Route: 048
     Dates: start: 20080708
  4. MONTELUKAST SODIUM [Concomitant]
     Indication: HYPERSENSITIVITY
     Route: 048
     Dates: start: 20060101
  5. ESCITALOPRAM OXALATE [Concomitant]
     Indication: DEPRESSION
     Route: 048
     Dates: start: 20080101
  6. PREGABALIN [Concomitant]
     Indication: ANTIINFLAMMATORY THERAPY
     Route: 048
  7. CLONAZEPAM [Concomitant]
     Indication: ESSENTIAL TREMOR
     Route: 048
  8. ULTRACET [Concomitant]
     Indication: ABDOMINAL PAIN
     Route: 048
  9. ERGOCALCIFEROL [Concomitant]
     Indication: VITAMIN D DEFICIENCY
     Route: 048
     Dates: start: 20080701
  10. PREDNISONE TAB [Concomitant]
     Indication: DRUG USE FOR UNKNOWN INDICATION
     Route: 050

REACTIONS (5)
  - BLOOD PRESSURE FLUCTUATION [None]
  - CONTUSION [None]
  - MUSCULAR WEAKNESS [None]
  - PAIN [None]
  - RASH MACULAR [None]
